FAERS Safety Report 24605208 (Version 1)
Quarter: 2024Q4

REPORT INFORMATION
  Report Type: Report from Study
  Country: CA (occurrence: CA)
  Receive Date: 20241111
  Receipt Date: 20241111
  Transmission Date: 20250114
  Serious: Yes (Hospitalization)
  Sender: GILEAD
  Company Number: CA-GILEAD-2024-0693457

PATIENT
  Sex: Female

DRUGS (1)
  1. AXICABTAGENE CILOLEUCEL [Suspect]
     Active Substance: AXICABTAGENE CILOLEUCEL
     Indication: Diffuse large B-cell lymphoma
     Dosage: UNK
     Route: 042
     Dates: start: 20241030, end: 20241030

REACTIONS (1)
  - Ill-defined disorder [Recovering/Resolving]
